FAERS Safety Report 7971557-9 (Version None)
Quarter: 2011Q4

REPORT INFORMATION
  Report Type: 
  Country: None (occurrence: None)
  Receive Date: 20111209
  Receipt Date: 20111209
  Transmission Date: 20120403
  Serious: Yes (Hospitalization)
  Sender: FDA-Public Use
  Company Number: None

PATIENT
  Age: 66 Year
  Sex: Male
  Weight: 90 kg

DRUGS (2)
  1. CLOPIDOGREL [Suspect]
     Indication: CORONARY ARTERY DISEASE
     Dosage: 75 MG EVERY DAY PO
     Route: 048
     Dates: start: 20110214, end: 20111128
  2. IBUPROFEN [Suspect]
     Indication: PAIN
     Dates: end: 20111128

REACTIONS (1)
  - GASTRIC HAEMORRHAGE [None]
